FAERS Safety Report 7564635-X (Version None)
Quarter: 2011Q2

REPORT INFORMATION
  Report Type: 
  Country: None (occurrence: None)
  Receive Date: 20110622
  Receipt Date: 20100826
  Transmission Date: 20111010
  Serious: Yes (Other)
  Sender: FDA-Public Use
  Company Number: US-MYLANLABS-2010S1013224

PATIENT
  Age: 47 Year
  Sex: Male
  Weight: 81.65 kg

DRUGS (9)
  1. CLOZAPINE [Suspect]
     Indication: SCHIZOPHRENIA
     Route: 048
     Dates: start: 20100705, end: 20100721
  2. KLONOPIN [Concomitant]
     Route: 048
  3. CLOZAPINE [Suspect]
     Route: 048
     Dates: start: 20100728
  4. LITHIUM CARBONATE [Concomitant]
  5. CLOZAPINE [Suspect]
     Indication: PSYCHOTIC DISORDER
     Route: 048
     Dates: start: 20100705, end: 20100721
  6. ABILIFY [Concomitant]
     Route: 048
  7. CLOZAPINE [Suspect]
     Route: 048
     Dates: start: 20100728
  8. LEXAPRO [Concomitant]
     Route: 048
  9. ATIVAN [Concomitant]
     Route: 048

REACTIONS (2)
  - LEUKOPENIA [None]
  - GRANULOCYTOPENIA [None]
